FAERS Safety Report 5392963-5 (Version None)
Quarter: 2007Q3

REPORT INFORMATION
  Report Type: 
  Country: None (occurrence: None)
  Receive Date: 20070719
  Receipt Date: 20070706
  Transmission Date: 20080115
  Serious: Yes (Other)
  Sender: FDA-Public Use
  Company Number: 2007-02344

PATIENT
  Age: 73 Year
  Sex: Male

DRUGS (9)
  1. VELCADE [Suspect]
     Indication: MANTLE CELL LYMPHOMA
     Dosage: 2.75 MG, INTRAVENOUS
     Route: 042
     Dates: start: 20070509, end: 20070608
  2. RITUXIMAB  (RITUXIMAB) INJECTION, 375MG/M2 [Suspect]
     Indication: MANTLE CELL LYMPHOMA
     Dosage: 800.00 MG, INTRAVENOUS
     Route: 042
     Dates: start: 20070509, end: 20070608
  3. CYCLOPHOSPHAMIDE [Suspect]
     Indication: MANTLE CELL LYMPHOMA
     Dosage: 630.00 MG, INTRAVENOUS
     Route: 042
     Dates: start: 20070509, end: 20070608
  4. VINCRISTINE [Suspect]
     Indication: MANTLE CELL LYMPHOMA
     Dosage: 2.00 MG, INTRAVENOUS
     Route: 042
     Dates: start: 20070509, end: 20070608
  5. ADRIAMYCIN PFS [Suspect]
     Indication: MANTLE CELL LYMPHOMA
     Dosage: 106.00 MG, INTRAVENOUS
     Route: 042
     Dates: start: 20070509, end: 20070608
  6. DEXAMETHASONE [Suspect]
     Indication: MANTLE CELL LYMPHOMA
     Dosage: 40.00 MG, INTRAVENOUS
     Route: 042
     Dates: start: 20070509, end: 20070608
  7. CLONIDINE [Concomitant]
  8. CRESTOR [Concomitant]
  9. ASPIRIN [Concomitant]

REACTIONS (2)
  - PULMONARY FUNCTION TEST DECREASED [None]
  - PULMONARY TOXICITY [None]
